FAERS Safety Report 24002955 (Version 1)
Quarter: 2024Q2

REPORT INFORMATION
  Report Type: Spontaneous
  Country: US (occurrence: US)
  Receive Date: 20240624
  Receipt Date: 20240624
  Transmission Date: 20240716
  Serious: Yes (Other)
  Sender: FDA-Public Use
  Company Number: US-SA-SAC20240618000719

PATIENT
  Age: 32 Year
  Sex: Male

DRUGS (4)
  1. ALPROLIX [Suspect]
     Active Substance: EFTRENONACOG ALFA
     Indication: Factor IX deficiency
     Dosage: 9160 UNITS (8244-10076) (DOSE: 6000 UNITS+3160 UNITS) VIA SLOW IV PUSH, QW
     Route: 042
     Dates: start: 201411
  2. ALPROLIX [Suspect]
     Active Substance: EFTRENONACOG ALFA
     Indication: Factor IX deficiency
     Dosage: 9160 UNITS (8244-10076) (DOSE: 6000 UNITS+3160 UNITS) VIA SLOW IV PUSH, QW
     Route: 042
     Dates: start: 201411
  3. ALPROLIX [Suspect]
     Active Substance: EFTRENONACOG ALFA
     Dosage: 9160 UNITS (8244-10076) (DOSE: 6000 UNITS+3160 UNITS), VIA SLOW IV PUSH, PRN (EVERY 24 TO 48 HOURS A
     Route: 042
     Dates: start: 201411
  4. ALPROLIX [Suspect]
     Active Substance: EFTRENONACOG ALFA
     Dosage: 9160 UNITS (8244-10076) (DOSE: 6000 UNITS+3160 UNITS), VIA SLOW IV PUSH, PRN (EVERY 24 TO 48 HOURS A
     Route: 042
     Dates: start: 201411

REACTIONS (2)
  - Muscle haemorrhage [Not Recovered/Not Resolved]
  - Haemorrhage [Not Recovered/Not Resolved]

NARRATIVE: CASE EVENT DATE: 20240613
